FAERS Safety Report 9034617 (Version 1)
Quarter: 2013Q1

REPORT INFORMATION
  Report Type: Spontaneous
  Country: US (occurrence: None)
  Receive Date: 20130116
  Receipt Date: 20130116
  Transmission Date: 20140127
  Serious: No
  Sender: FDA-Public Use
  Company Number: None

PATIENT
  Age: 72 Year
  Sex: Female

DRUGS (1)
  1. HYDRALAZINE [Suspect]
     Dates: start: 20110513, end: 20111205

REACTIONS (7)
  - Drug-induced liver injury [None]
  - Abdominal pain [None]
  - Jaundice [None]
  - Fatigue [None]
  - Antinuclear antibody positive [None]
  - Hepatitis [None]
  - Autoimmune disorder [None]
